FAERS Safety Report 4341196-X (Version None)
Quarter: 2004Q1

REPORT INFORMATION
  Report Type: 
  Country: None (occurrence: None)
  Receive Date: 20040329
  Receipt Date: 20031210
  Transmission Date: 20041129
  Serious: No
  Sender: FDA-Public Use
  Company Number: 03P-163-0244234-00

PATIENT
  Age: 58 Year
  Sex: Female

DRUGS (11)
  1. HUMIRA [Suspect]
     Indication: RHEUMATOID ARTHRITIS
     Dosage: 40 MG, 1 IN 2 WK, SUBCUTANEOUS
     Route: 058
     Dates: start: 20031001
  2. LEFLUNOMIDE [Concomitant]
  3. AMLODIPINE BESYLATE [Concomitant]
  4. HYZAAR [Concomitant]
  5. MONTELUKAST SODIUM [Concomitant]
  6. PANTOPRAZOLE [Concomitant]
  7. CONJUGATED ESTROGEN [Concomitant]
  8. GABAPENTIN [Concomitant]
  9. OXYCOCET [Concomitant]
  10. LEXAPRO [Concomitant]
  11. ALPRAZOLAM [Concomitant]

REACTIONS (1)
  - INJECTION SITE HAEMORRHAGE [None]
